FAERS Safety Report 19620562 (Version 1)
Quarter: 2021Q3

REPORT INFORMATION
  Report Type: Spontaneous
  Country: FR (occurrence: FR)
  Receive Date: 20210728
  Receipt Date: 20210728
  Transmission Date: 20211014
  Serious: Yes (Death, Other)
  Sender: FDA-Public Use
  Company Number: FR-AUROBINDO-AUR-APL-2021-031707

PATIENT
  Age: 52 Year
  Sex: Female

DRUGS (4)
  1. ULTIBRO BREEZHALER [Suspect]
     Active Substance: GLYCOPYRRONIUM\INDACATEROL
     Indication: PRODUCT USED FOR UNKNOWN INDICATION
     Dosage: 1 DOSAGE FORM (1 DF / DAY)
     Route: 055
     Dates: end: 20210613
  2. ZOLOFT [Concomitant]
     Active Substance: SERTRALINE HYDROCHLORIDE
     Indication: DEPRESSION
     Dosage: 50 MG / DAY
     Route: 048
     Dates: end: 20210613
  3. AMOXICILLIN. [Suspect]
     Active Substance: AMOXICILLIN
     Indication: PANCREATITIS
     Dosage: 1 GRAM, SINGLE TAKE
     Route: 041
     Dates: start: 20210613, end: 20210613
  4. PULMICORT TURBUHALER [Concomitant]
     Active Substance: BUDESONIDE
     Indication: ASTHMA
     Dosage: 400 MICROGRAM (400 ?G / D)
     Route: 055
     Dates: end: 20210613

REACTIONS (2)
  - Cardio-respiratory arrest [Fatal]
  - Anaphylactic shock [Fatal]

NARRATIVE: CASE EVENT DATE: 20210613
